FAERS Safety Report 8329454-5 (Version None)
Quarter: 2012Q2

REPORT INFORMATION
  Report Type: 
  Country: None (occurrence: None)
  Receive Date: 20120502
  Receipt Date: 20120427
  Transmission Date: 20120825
  Serious: Yes (Hospitalization)
  Sender: FDA-Public Use
  Company Number: FR-ROCHE-1057831

PATIENT
  Sex: Male
  Weight: 64 kg

DRUGS (8)
  1. RHINOFEBRAL [Concomitant]
     Dates: start: 20120225, end: 20120306
  2. DIPROSONE [Concomitant]
     Dates: start: 20120306
  3. NIFLURIL [Concomitant]
     Dates: start: 20120217, end: 20120306
  4. VEMURAFENIB [Suspect]
     Dosage: RESTARTED AT A REDUCED DOSE
     Route: 048
  5. PERUBORE [Concomitant]
     Dates: start: 20120306
  6. VEMURAFENIB [Suspect]
     Indication: MALIGNANT MELANOMA
     Dosage: LAST DOSE PRIOR TO SAE ON 04/APR/2012.
     Route: 048
     Dates: start: 20120207, end: 20120411
  7. RHINOFEBRAL [Concomitant]
     Dates: start: 20120306
  8. AUGMENTIN [Concomitant]
     Dates: start: 20120306

REACTIONS (1)
  - HYPERTHYROIDISM [None]
